FAERS Safety Report 7012188-7 (Version None)
Quarter: 2010Q3

REPORT INFORMATION
  Report Type: 
  Country: None (occurrence: None)
  Receive Date: 20100924
  Receipt Date: 20100915
  Transmission Date: 20110219
  Serious: Yes (Hospitalization)
  Sender: FDA-Public Use
  Company Number: KR-ASTRAZENECA-2010SE43289

PATIENT
  Age: 28804 Day
  Sex: Male

DRUGS (7)
  1. CRESTOR [Suspect]
     Indication: HYPERLIPIDAEMIA
     Route: 048
     Dates: start: 20050705
  2. ASPIRIN [Concomitant]
     Indication: ANGINA PECTORIS
     Dates: start: 20050703
  3. SELECTOR [Concomitant]
     Indication: ANGINA PECTORIS
     Dates: start: 20050705
  4. DAGES [Concomitant]
     Indication: DYSPEPSIA
     Dates: start: 20050630
  5. PLAVIX [Concomitant]
     Indication: ANGINA PECTORIS
     Dates: start: 20050630
  6. ISOSORBIDE DINITRATE [Concomitant]
     Indication: ANGINA PECTORIS
     Dates: start: 20050706
  7. NITROGLYCERIN [Concomitant]
     Indication: ANGINA PECTORIS
     Dates: start: 20050704

REACTIONS (1)
  - OEDEMA PERIPHERAL [None]
